FAERS Safety Report 5914447-5 (Version None)
Quarter: 2008Q4

REPORT INFORMATION
  Report Type: 
  Country: None (occurrence: None)
  Receive Date: 20081007
  Receipt Date: 20080930
  Transmission Date: 20090506
  Serious: Yes (Death, Other)
  Sender: FDA-Public Use
  Company Number: CERZ-1000355

PATIENT
  Age: 14 Year
  Sex: Female
  Weight: 36 kg

DRUGS (7)
  1. CEREZYME [Suspect]
     Indication: GAUCHER'S DISEASE
     Dosage: 2200 U, Q2W, INTRAVENOUS
     Route: 042
     Dates: start: 20070409, end: 20080421
  2. CEREZYME [Suspect]
  3. ENALAPRIL MALEATE AND HYDROCHLOROTHIAZIDE [Concomitant]
  4. LASIX [Concomitant]
  5. COUMADIN [Concomitant]
  6. KEPPRA [Concomitant]
  7. FERROUS SULFATE TAB [Concomitant]

REACTIONS (2)
  - CARDIO-RESPIRATORY ARREST [None]
  - LOSS OF CONSCIOUSNESS [None]
